FAERS Safety Report 14634884 (Version 1)
Quarter: 2018Q1

REPORT INFORMATION
  Report Type: Spontaneous
  Country: BG (occurrence: BG)
  Receive Date: 20180314
  Receipt Date: 20180314
  Transmission Date: 20180509
  Serious: Yes (Hospitalization, Other)
  Sender: FDA-Public Use
  Company Number: BG-BAYER-2018-044939

PATIENT
  Age: 56 Year
  Sex: Male

DRUGS (3)
  1. INDAPAMIDE. [Concomitant]
     Active Substance: INDAPAMIDE
  2. ASPIRIN PROTECT 100 MG [Suspect]
     Active Substance: ASPIRIN
     Dosage: UNK
  3. PROPAFENONE. [Concomitant]
     Active Substance: PROPAFENONE
     Dosage: 300 MG, BID

REACTIONS (2)
  - Atrial fibrillation [Recovered/Resolved]
  - Atrial thrombosis [Recovered/Resolved]
